FAERS Safety Report 5806749-8 (Version None)
Quarter: 2008Q3

REPORT INFORMATION
  Report Type: 
  Country: None (occurrence: None)
  Receive Date: 20080709
  Receipt Date: 20080709
  Transmission Date: 20090109
  Serious: No
  Sender: FDA-Public Use
  Company Number: None

PATIENT
  Sex: Male
  Weight: 71.8 kg

DRUGS (4)
  1. BEVACIZUMAB (RHUMAB VEGF) [Suspect]
     Dosage: 1392 MG
  2. LEUCOVORIN CALCIUM [Suspect]
     Dosage: 2896 MG
  3. ELOXATIN [Suspect]
     Dosage: 472 MG
  4. FLUOROURACIL [Suspect]
     Dosage: 16320 MG

REACTIONS (2)
  - INTERNATIONAL NORMALISED RATIO DECREASED [None]
  - VENOUS THROMBOSIS [None]
